FAERS Safety Report 7226947-9 (Version None)
Quarter: 2011Q1

REPORT INFORMATION
  Report Type: 
  Country: None (occurrence: None)
  Receive Date: 20110105
  Receipt Date: 20101223
  Transmission Date: 20110831
  Serious: Yes (Hospitalization)
  Sender: FDA-Public Use
  Company Number: 023945

PATIENT
  Sex: Female
  Weight: 60 kg

DRUGS (5)
  1. KEPPRA [Suspect]
     Indication: EPILEPSY
     Dosage: 1000 MG BID, ORAL; 2500 MG ORAL
     Route: 048
     Dates: start: 20100127, end: 20100501
  2. KEPPRA [Suspect]
     Indication: EPILEPSY
     Dosage: 1000 MG BID, ORAL; 2500 MG ORAL
     Route: 048
     Dates: start: 20100120, end: 20100126
  3. KEPPRA [Suspect]
     Indication: EPILEPSY
     Dosage: 1000 MG BID, ORAL; 2500 MG ORAL
     Route: 048
     Dates: start: 20100929
  4. KEPPRA [Suspect]
     Indication: EPILEPSY
     Dosage: 1000 MG BID, ORAL; 2500 MG ORAL
     Route: 048
     Dates: start: 20100113, end: 20100119
  5. KEPPRA [Suspect]
     Indication: EPILEPSY
     Dosage: 1000 MG BID, ORAL; 2500 MG ORAL
     Route: 048
     Dates: start: 20100501, end: 20100928

REACTIONS (1)
  - SUDDEN HEARING LOSS [None]
